FAERS Safety Report 13197492 (Version 1)
Quarter: 2017Q1

REPORT INFORMATION
  Report Type: Spontaneous
  Country: US (occurrence: US)
  Receive Date: 20170208
  Receipt Date: 20170208
  Transmission Date: 20170428
  Serious: No
  Sender: FDA-Public Use
  Company Number: US-PERRIGO-16US001598

PATIENT
  Sex: Female

DRUGS (1)
  1. IBUPROFEN. [Suspect]
     Active Substance: IBUPROFEN
     Indication: EAR INFECTION
     Dosage: UNKNOWN, UNKNOWN
     Route: 048
     Dates: start: 201602, end: 201602

REACTIONS (4)
  - Abnormal behaviour [Unknown]
  - Vomiting [Unknown]
  - Malaise [Unknown]
  - Expired product administered [Recovered/Resolved]

NARRATIVE: CASE EVENT DATE: 201602
